FAERS Safety Report 21475586 (Version 1)
Quarter: 2022Q4

REPORT INFORMATION
  Report Type: Report from Study
  Country: US (occurrence: US)
  Receive Date: 20221019
  Receipt Date: 20221019
  Transmission Date: 20230112
  Serious: Yes (Hospitalization, Other)
  Sender: FDA-Public Use
  Company Number: US-ABBVIE-4164780

PATIENT
  Sex: Male

DRUGS (3)
  1. HUMIRA [Suspect]
     Active Substance: ADALIMUMAB
     Indication: Crohn^s disease
     Route: 058
     Dates: start: 20180608
  2. Moderna [Concomitant]
     Indication: Product used for unknown indication
     Dosage: ONCE
     Route: 030
  3. Moderna [Concomitant]
     Indication: Product used for unknown indication
     Dosage: BOOSTER, ONCE
     Route: 030

REACTIONS (2)
  - Stenosis [Unknown]
  - Post procedural complication [Unknown]
